FAERS Safety Report 14012231 (Version 1)
Quarter: 2017Q3

REPORT INFORMATION
  Report Type: Spontaneous
  Country: AR (occurrence: AR)
  Receive Date: 20170926
  Receipt Date: 20170926
  Transmission Date: 20171128
  Serious: Yes (Death, Hospitalization)
  Sender: FDA-Public Use
  Company Number: AR-PFIZER INC-2017414388

PATIENT
  Age: 62 Year
  Sex: Male

DRUGS (1)
  1. SUTENT [Suspect]
     Active Substance: SUNITINIB MALATE
     Indication: METASTATIC RENAL CELL CARCINOMA
     Dosage: UNK
     Dates: start: 20170601, end: 201708

REACTIONS (7)
  - Asphyxia [Unknown]
  - Dyspnoea [Unknown]
  - Catarrh [Unknown]
  - Nipple swelling [Unknown]
  - Constipation [Unknown]
  - Cardiac arrest [Fatal]
  - Malaise [Unknown]

NARRATIVE: CASE EVENT DATE: 20170901
